FAERS Safety Report 18329062 (Version 1)
Quarter: 2020Q3

REPORT INFORMATION
  Report Type: Report from Study
  Country: US (occurrence: US)
  Receive Date: 20200930
  Receipt Date: 20200930
  Transmission Date: 20201103
  Serious: Yes (Hospitalization)
  Sender: FDA-Public Use
  Company Number: US-EISAI MEDICAL RESEARCH-EC-2020-079737

PATIENT
  Age: 89 Year
  Sex: Female

DRUGS (1)
  1. LENVIMA [Suspect]
     Active Substance: LENVATINIB
     Indication: ENDOMETRIAL CANCER
     Route: 048
     Dates: start: 20200820, end: 202009

REACTIONS (11)
  - Diarrhoea [Recovered/Resolved]
  - Flatulence [Unknown]
  - Decreased appetite [Unknown]
  - Vomiting [Unknown]
  - Buttock injury [Unknown]
  - Oral pain [Not Recovered/Not Resolved]
  - Dry mouth [Unknown]
  - Retching [Unknown]
  - Abdominal discomfort [Recovered/Resolved]
  - Vaginal haemorrhage [Recovered/Resolved]
  - Weight decreased [Unknown]

NARRATIVE: CASE EVENT DATE: 2020
